FAERS Safety Report 7386501-5 (Version None)
Quarter: 2011Q1

REPORT INFORMATION
  Report Type: 
  Country: None (occurrence: None)
  Receive Date: 20110331
  Receipt Date: 20110328
  Transmission Date: 20110831
  Serious: Yes (Death, Hospitalization)
  Sender: FDA-Public Use
  Company Number: IT-JNJFOC-20110207595

PATIENT
  Age: 72 Year
  Sex: Male
  Weight: 70 kg

DRUGS (7)
  1. FOSAVANCE [Concomitant]
     Indication: OSTEOPOROSIS
  2. FOLIC ACID [Concomitant]
     Indication: RHEUMATOID ARTHRITIS
  3. METHYLPREDNISOLONE [Concomitant]
     Indication: RHEUMATOID ARTHRITIS
  4. NIMESULIDE [Concomitant]
     Indication: RHEUMATOID ARTHRITIS
     Dosage: PRN
  5. METHOTREXATE [Concomitant]
     Indication: RHEUMATOID ARTHRITIS
  6. PARACETAMOL [Concomitant]
     Dosage: PRN
  7. GOLIMUMAB [Suspect]
     Indication: RHEUMATOID ARTHRITIS
     Route: 058

REACTIONS (3)
  - MYOCARDIAL INFARCTION [None]
  - MULTI-ORGAN FAILURE [None]
  - PNEUMONITIS [None]
